FAERS Safety Report 6673481-0 (Version None)
Quarter: 2010Q2

REPORT INFORMATION
  Report Type: 
  Country: None (occurrence: None)
  Receive Date: 20100408
  Receipt Date: 20100329
  Transmission Date: 20101027
  Serious: Yes (Hospitalization)
  Sender: FDA-Public Use
  Company Number: PT-BAXTER-2010BH008406

PATIENT
  Age: 55 Year
  Sex: Male

DRUGS (3)
  1. EXTRANEAL [Suspect]
     Indication: RENAL FAILURE CHRONIC
     Route: 033
     Dates: start: 20091201
  2. EXTRANEAL [Suspect]
     Indication: PERITONEAL DIALYSIS
     Route: 033
     Dates: start: 20091201
  3. PHYSIOSOL IN PLASTIC CONTAINER [Concomitant]
     Indication: RENAL FAILURE CHRONIC
     Route: 033
     Dates: start: 20091201

REACTIONS (3)
  - ABDOMINAL DISCOMFORT [None]
  - CEREBROVASCULAR ACCIDENT [None]
  - PROCEDURAL PAIN [None]
